FAERS Safety Report 21070093 (Version 1)
Quarter: 2022Q3

REPORT INFORMATION
  Report Type: Spontaneous
  Country: ES (occurrence: ES)
  Receive Date: 20220712
  Receipt Date: 20220712
  Transmission Date: 20221027
  Serious: Yes (Life-Threatening, Other)
  Sender: FDA-Public Use
  Company Number: None

PATIENT
  Age: 60 Year
  Sex: Female

DRUGS (5)
  1. PROPOFOL [Suspect]
     Active Substance: PROPOFOL
     Indication: Induction of anaesthesia
     Route: 065
     Dates: start: 20200102, end: 20200102
  2. CEFMINOX SODIUM [Suspect]
     Active Substance: CEFMINOX SODIUM
     Indication: Antibiotic prophylaxis
     Dosage: 2G, 1 VIAL
     Route: 065
     Dates: start: 20200102, end: 20200102
  3. FENTANYL [Suspect]
     Active Substance: FENTANYL
     Indication: Induction of anaesthesia
     Route: 065
     Dates: start: 20200102, end: 20200102
  4. MIDAZOLAM [Suspect]
     Active Substance: MIDAZOLAM
     Indication: Anaesthetic premedication
     Route: 065
     Dates: start: 20200102, end: 20200102
  5. ROCURONIUM [Suspect]
     Active Substance: ROCURONIUM BROMIDE
     Indication: Induction of anaesthesia
     Dosage: STRENGTH 10 MG/ML, 20 AMPOULES OF 5 ML
     Route: 065
     Dates: start: 20200102, end: 20200102

REACTIONS (1)
  - Anaphylactic shock [Recovered/Resolved]

NARRATIVE: CASE EVENT DATE: 20200102
